FAERS Safety Report 10416696 (Version 1)
Quarter: 2014Q3

REPORT INFORMATION
  Report Type: Report from Study
  Country: BR (occurrence: BR)
  Receive Date: 20140828
  Receipt Date: 20140828
  Transmission Date: 20150326
  Serious: Yes (Hospitalization, Other)
  Sender: FDA-Public Use
  Company Number: PHHY2014BR108011

PATIENT
  Age: 20 Year
  Sex: Female
  Weight: 40 kg

DRUGS (7)
  1. ZOTEON PODHALER [Suspect]
     Active Substance: TOBRAMYCIN
     Indication: PSEUDOMONAS INFECTION
     Dosage: 4 DF, BID (4 CAPSULES 8 AM AND 4 CAPSULES 8 PM)
     Dates: start: 20140716
  2. COLOMYCIN [Concomitant]
     Active Substance: COLISTIN
     Indication: PSEUDOMONAS INFECTION
     Dosage: 2 DF (WITH 5 ML SALINE SOLUTION 9%), Q12H
  3. PULMOZYME [Concomitant]
     Active Substance: DORNASE ALFA
     Indication: PRODUCTIVE COUGH
     Dosage: 1 DF, DAILY
  4. CREON [Concomitant]
     Active Substance: PANCRELIPASE AMYLASE\PANCRELIPASE LIPASE\PANCRELIPASE PROTEASE
     Indication: DYSPEPSIA
     Dosage: UNK UKN, UNK (PER MEAL)
  5. ULTRASE [Concomitant]
     Active Substance: PANCRELIPASE
     Indication: DYSPEPSIA
     Dosage: 1 DF, UNK (PER MEAL)
     Dates: start: 2005
  6. SERETIDE [Concomitant]
     Active Substance: FLUTICASONE FUROATE\SALMETEROL XINAFOATE
     Indication: DYSPNOEA
     Dosage: 1 DF, Q12H (1 APPLICATION EVERY 12 HOURS)
  7. AZITHROMYCIN [Concomitant]
     Active Substance: AZITHROMYCIN ANHYDROUS
     Indication: PSEUDOMONAS INFECTION
     Dosage: 1 DF, QW3 (MONDAY, WEDNESDAY AND FRIDAY)

REACTIONS (7)
  - Weight decreased [Recovering/Resolving]
  - Respiratory failure [Recovering/Resolving]
  - Respiratory tract infection [Recovering/Resolving]
  - Aphagia [Recovering/Resolving]
  - Sputum discoloured [Recovering/Resolving]
  - Haemorrhage [Recovering/Resolving]
  - Cough [Recovering/Resolving]

NARRATIVE: CASE EVENT DATE: 20140812
